FAERS Safety Report 6696362-5 (Version None)
Quarter: 2010Q2

REPORT INFORMATION
  Report Type: 
  Country: None (occurrence: None)
  Receive Date: 20100421
  Receipt Date: 20100409
  Transmission Date: 20101027
  Serious: Yes (Hospitalization, Other)
  Sender: FDA-Public Use
  Company Number: 028-20484-09020715

PATIENT
  Age: 33 Year
  Sex: Female

DRUGS (6)
  1. INNOHEP [Suspect]
     Indication: DEEP VEIN THROMBOSIS
     Dosage: 10000 IU (10000 IU, 1 IN 1 DAY) SUBCUTANEOUS
     Route: 058
     Dates: start: 20070315, end: 20070328
  2. INNOHEP [Suspect]
     Indication: DEEP VEIN THROMBOSIS
     Dosage: 14000 IU (14000 IU, 1 IN 1 DAY, SUBCUTANEOUS
     Route: 058
     Dates: start: 20070328, end: 20070417
  3. INNOHEP [Suspect]
     Indication: DEEP VEIN THROMBOSIS
     Dosage: 18000 IU (18000 IU, 1 IN 1 D) SUBCUTANEOUS
     Route: 058
     Dates: start: 20080417, end: 20080428
  4. INNOHEP [Suspect]
     Indication: DEEP VEIN THROMBOSIS
     Dosage: THERAPEUTIC DOSE, STARTED POST PARTUM
  5. WARFARIN SODIUM [Suspect]
     Dosage: STARTED POSTPARTUM
  6. HEPARIN [Concomitant]

REACTIONS (5)
  - ANAEMIA [None]
  - CAESAREAN SECTION [None]
  - DRUG EXPOSURE DURING PREGNANCY [None]
  - INTERNATIONAL NORMALISED RATIO INCREASED [None]
  - POST PROCEDURAL HAEMATOMA [None]
